FAERS Safety Report 9892640 (Version 2)
Quarter: 2014Q2

REPORT INFORMATION
  Report Type: Spontaneous
  Country: US (occurrence: US)
  Receive Date: 20140212
  Receipt Date: 20140408
  Transmission Date: 20141212
  Serious: Yes (Hospitalization)
  Sender: FDA-Public Use
  Company Number: US-B.I. PHARMACEUTICALS,INC./RIDGEFIELD-2014-BI-05953BP

PATIENT
  Sex: Female
  Weight: 95 kg

DRUGS (13)
  1. SPIRIVA [Suspect]
     Indication: CHRONIC OBSTRUCTIVE PULMONARY DISEASE
     Dosage: 18 MCG
     Route: 055
     Dates: start: 2007, end: 20131221
  2. OMEPRAZOLE [Concomitant]
     Indication: GASTROOESOPHAGEAL REFLUX DISEASE
     Dosage: 20 MG
     Route: 048
  3. ZOFRAN [Concomitant]
     Indication: NAUSEA
     Route: 048
  4. LASIX [Concomitant]
     Indication: OEDEMA
     Dosage: 80 MG
     Route: 048
  5. CLONAZEPAM [Concomitant]
     Indication: ANXIETY
     Dosage: 4 MG
     Route: 048
  6. CALCIUM CITRATE-VITAMIN D [Concomitant]
     Indication: BLOOD CALCIUM DECREASED
     Dosage: 500 MG
     Route: 048
  7. PREMARIN [Concomitant]
     Dosage: 0.625 MG
     Route: 048
  8. SYNTHROID [Concomitant]
     Indication: HYPOTHYROIDISM
     Dosage: 25 MCG
     Route: 048
  9. EFFEXOR [Concomitant]
     Indication: DEPRESSION
     Dosage: 225 MG
     Route: 048
  10. ALBUTEROL [Concomitant]
     Indication: CHRONIC OBSTRUCTIVE PULMONARY DISEASE
     Dosage: FORMULATION: INHALATION SPRAY
     Route: 055
  11. POTASSIUM CHLORIDE [Concomitant]
     Indication: BLOOD POTASSIUM DECREASED
     Dosage: 20 MEQ
     Route: 048
  12. DULERA [Concomitant]
     Indication: CHRONIC OBSTRUCTIVE PULMONARY DISEASE
     Dosage: FORMULATION: INHALATION SPRAY
     Route: 055
  13. METHADONE [Concomitant]
     Route: 065

REACTIONS (5)
  - Heart rate increased [Not Recovered/Not Resolved]
  - Peripheral swelling [Not Recovered/Not Resolved]
  - Peripheral swelling [Not Recovered/Not Resolved]
  - Hyponatraemia [Unknown]
  - Oedema [Unknown]
